FAERS Safety Report 25085545 (Version 1)
Quarter: 2025Q1

REPORT INFORMATION
  Report Type: Spontaneous
  Country: US (occurrence: US)
  Receive Date: 20250317
  Receipt Date: 20250317
  Transmission Date: 20250409
  Serious: No
  Sender: SANOFI AVENTIS
  Company Number: US-SA-SAC20220627000105

PATIENT
  Age: 66 Year
  Sex: Male

DRUGS (10)
  1. DUPIXENT [Suspect]
     Active Substance: DUPILUMAB
     Indication: Dermatitis atopic
     Dosage: 300 MG, QOW
     Route: 058
     Dates: start: 20220128
  2. CLOBETASOL [Concomitant]
     Active Substance: CLOBETASOL
  3. CYCLOSPORINE [Concomitant]
     Active Substance: CYCLOSPORINE
  4. MELOXICAM [Concomitant]
     Active Substance: MELOXICAM
  5. PREDNISONE [Concomitant]
     Active Substance: PREDNISONE
  6. TAMSULOSIN [Concomitant]
     Active Substance: TAMSULOSIN
  7. CYCLOSPORINE [Concomitant]
     Active Substance: CYCLOSPORINE
  8. MELOXICAM [Concomitant]
     Active Substance: MELOXICAM
  9. DIAZEPAM [Concomitant]
     Active Substance: DIAZEPAM
  10. OXYCODONE [Concomitant]
     Active Substance: OXYCODONE

REACTIONS (2)
  - Infection [Not Recovered/Not Resolved]
  - Therapeutic product effect decreased [Unknown]
